FAERS Safety Report 12598548 (Version 2)
Quarter: 2017Q2

REPORT INFORMATION
  Report Type: Report from Study
  Country: US (occurrence: US)
  Receive Date: 20160727
  Receipt Date: 20170630
  Transmission Date: 20170830
  Serious: Yes (Other)
  Sender: FDA-Public Use
  Company Number: US-NAPPMUNDI-USA-2016-0132405

PATIENT
  Age: 71 Year
  Sex: Female

DRUGS (2)
  1. OXYCODONE HYDROCHLORIDE. [Suspect]
     Active Substance: OXYCODONE HYDROCHLORIDE
     Indication: POLYMYOSITIS
     Dosage: 20 MG, TID
     Route: 048
     Dates: start: 201508
  2. OXYCODONE HYDROCHLORIDE. [Suspect]
     Active Substance: OXYCODONE HYDROCHLORIDE
     Indication: SPINAL CORD DISORDER
     Dosage: UNK
     Route: 048
     Dates: start: 2006

REACTIONS (7)
  - Malaise [Unknown]
  - Foot operation [Unknown]
  - Blood test abnormal [Unknown]
  - Myalgia [Unknown]
  - Off label use [Unknown]
  - Arthritis [Unknown]
  - Inflammation [Unknown]

NARRATIVE: CASE EVENT DATE: 2009
